FAERS Safety Report 7992281-2 (Version None)
Quarter: 2011Q4

REPORT INFORMATION
  Report Type: 
  Country: None (occurrence: None)
  Receive Date: 20111219
  Receipt Date: 20110610
  Transmission Date: 20120403
  Serious: No
  Sender: FDA-Public Use
  Company Number: US-ASTRAZENECA-2011SE35901

PATIENT
  Age: 55 Year
  Sex: Female
  Weight: 58.1 kg

DRUGS (5)
  1. CRESTOR [Suspect]
     Route: 048
     Dates: start: 20110101
  2. LISINOPRIL [Concomitant]
  3. MULTI-VITAMIN [Concomitant]
  4. CRESTOR [Suspect]
     Route: 048
     Dates: start: 20100101
  5. B STRESS COMPLEX [Concomitant]

REACTIONS (5)
  - TEMPOROMANDIBULAR JOINT SYNDROME [None]
  - TINNITUS [None]
  - VAGINAL HAEMORRHAGE [None]
  - NECK PAIN [None]
  - PAIN IN JAW [None]
